FAERS Safety Report 4853101-8 (Version None)
Quarter: 2005Q4

REPORT INFORMATION
  Report Type: 
  Country: None (occurrence: None)
  Receive Date: 20051212
  Receipt Date: 20051123
  Transmission Date: 20060501
  Serious: Yes (Death)
  Sender: FDA-Public Use
  Company Number: US_0511123845

PATIENT
  Age: 75 Year
  Sex: Female

DRUGS (8)
  1. ZYPREXA [Suspect]
     Indication: DEPRESSION
     Dosage: 2.5 MG, DAILY (1/D),
     Dates: start: 20051102
  2. LEXAPRO [Concomitant]
  3. TOPROL-XL [Concomitant]
  4. ACTOS [Concomitant]
  5. CRESTOR [Concomitant]
  6. GLUCOTROL [Concomitant]
  7. CLARINEX [Concomitant]
  8. SINGULAIR [Concomitant]

REACTIONS (5)
  - ARRHYTHMIA [None]
  - DYSPNOEA [None]
  - LOSS OF CONSCIOUSNESS [None]
  - RESUSCITATION [None]
  - SUDDEN DEATH [None]
